FAERS Safety Report 10518461 (Version 1)
Quarter: 2014Q4

REPORT INFORMATION
  Report Type: Spontaneous
  Country: US (occurrence: None)
  Receive Date: 20141014
  Receipt Date: 20141014
  Transmission Date: 20150528
  Serious: Yes (Hospitalization)
  Sender: FDA-Public Use
  Company Number: None

PATIENT
  Age: 53 Year
  Sex: Male
  Weight: 104.5 kg

DRUGS (1)
  1. BACITRACIN/NEOMYCIN/POLYMYXIN B [Suspect]
     Active Substance: BACITRACIN\NEOMYCIN\POLYMYXIN B SULFATE
     Indication: SKIN INFECTION
     Dosage: THIN FILM BID TOP
     Route: 061
     Dates: start: 20140508, end: 20140511

REACTIONS (5)
  - Post procedural complication [None]
  - Incision site pain [None]
  - Dermatitis contact [None]
  - Incision site erythema [None]
  - Swelling face [None]

NARRATIVE: CASE EVENT DATE: 20140510
